FAERS Safety Report 10695196 (Version 1)
Quarter: 2015Q1

REPORT INFORMATION
  Report Type: Spontaneous
  Country: US (occurrence: US)
  Receive Date: 20150107
  Receipt Date: 20150107
  Transmission Date: 20150721
  Serious: No
  Sender: FDA-Public Use
  Company Number: US-BRISTOL-MYERS SQUIBB COMPANY-BMS-2014-004052

PATIENT
  Sex: Male
  Weight: 97.51 kg

DRUGS (11)
  1. SIMVASTATIN. [Concomitant]
     Active Substance: SIMVASTATIN
  2. FARXIGA [Suspect]
     Active Substance: DAPAGLIFLOZIN PROPANEDIOL
     Indication: TYPE 2 DIABETES MELLITUS
     Dosage: 5 MG, QD
     Route: 048
  3. PLAVIX [Concomitant]
     Active Substance: CLOPIDOGREL BISULFATE
  4. AVODART [Concomitant]
     Active Substance: DUTASTERIDE
  5. METFORMIN [Concomitant]
     Active Substance: METFORMIN HYDROCHLORIDE
  6. LANTUS [Concomitant]
     Active Substance: INSULIN GLARGINE
  7. FUROSEMIDE. [Concomitant]
     Active Substance: FUROSEMIDE
  8. LISINOPRIL. [Concomitant]
     Active Substance: LISINOPRIL
  9. METOPROLOL [Concomitant]
     Active Substance: METOPROLOL
  10. TERAZOSIN [Concomitant]
     Active Substance: TERAZOSIN\TERAZOSIN HYDROCHLORIDE
  11. FARXIGA [Suspect]
     Active Substance: DAPAGLIFLOZIN PROPANEDIOL
     Dosage: 10 MG, UNK
     Route: 048

REACTIONS (2)
  - Rash pruritic [Recovered/Resolved]
  - Weight decreased [Unknown]
